FAERS Safety Report 22722002 (Version 2)
Quarter: 2023Q4

REPORT INFORMATION
  Report Type: Spontaneous
  Country: US (occurrence: US)
  Receive Date: 20230719
  Receipt Date: 20231026
  Transmission Date: 20240109
  Serious: No
  Sender: FDA-Public Use
  Company Number: US-ABBVIE-5332585

PATIENT
  Sex: Female

DRUGS (2)
  1. RESTASIS [Suspect]
     Active Substance: CYCLOSPORINE
     Indication: Product used for unknown indication
     Dosage: IN BOTH EYES
     Route: 047
     Dates: start: 2023, end: 20230708
  2. RESTASIS [Suspect]
     Active Substance: CYCLOSPORINE
     Dosage: IN BOTH EYES
     Route: 047

REACTIONS (3)
  - Drug ineffective [Unknown]
  - Eye irritation [Unknown]
  - Dry eye [Unknown]

NARRATIVE: CASE EVENT DATE: 20230101
